FAERS Safety Report 14661593 (Version 1)
Quarter: 2018Q1

REPORT INFORMATION
  Report Type: Spontaneous
  Country: US (occurrence: US)
  Receive Date: 20180320
  Receipt Date: 20180320
  Transmission Date: 20180509
  Serious: Yes (Hospitalization, Other)
  Sender: FDA-Public Use
  Company Number: US-009507513-1803USA007235

PATIENT
  Age: 7 Year

DRUGS (2)
  1. CUBICIN RF [Suspect]
     Active Substance: DAPTOMYCIN
     Route: 065
  2. CUBICIN [Suspect]
     Active Substance: DAPTOMYCIN
     Route: 065

REACTIONS (1)
  - Seizure [Unknown]
